FAERS Safety Report 8375919-X (Version None)
Quarter: 2012Q2

REPORT INFORMATION
  Report Type: 
  Country: None (occurrence: None)
  Receive Date: 20120522
  Receipt Date: 20120511
  Transmission Date: 20120825
  Serious: Yes (Other)
  Sender: FDA-Public Use
  Company Number: CA-BRISTOL-MYERS SQUIBB COMPANY-15011521

PATIENT
  Age: 64 Year
  Sex: Female

DRUGS (5)
  1. RABEPRAZOLE SODIUM [Concomitant]
     Indication: GASTROINTESTINAL DISORDER
     Dosage: RAN-RABEPRAZOLE
     Route: 048
     Dates: start: 20080901
  2. SYNTHROID [Concomitant]
     Indication: THYROID DISORDER
     Dates: start: 20110712
  3. AVAPRO [Suspect]
     Indication: HYPERTENSION
     Dosage: ALSO IN 2005
     Route: 048
     Dates: start: 20020101
  4. CRESTOR [Concomitant]
     Indication: BLOOD CHOLESTEROL INCREASED
     Dosage: STARTED:APPROXIMATELY 2007 (APPROX 10YEARS)
     Route: 048
     Dates: start: 20000101
  5. SIMVASTATIN [Concomitant]
     Indication: HYPERLIPIDAEMIA
     Route: 048
     Dates: start: 20000101

REACTIONS (4)
  - DYSPEPSIA [None]
  - DRY MOUTH [None]
  - SJOGREN'S SYNDROME [None]
  - DRY EYE [None]
